FAERS Safety Report 13345872 (Version 1)
Quarter: 2017Q1

REPORT INFORMATION
  Report Type: Spontaneous
  Country: US (occurrence: US)
  Receive Date: 20170317
  Receipt Date: 20170317
  Transmission Date: 20170428
  Serious: Yes (Death)
  Sender: FDA-Public Use
  Company Number: None

PATIENT
  Age: 66 Year
  Sex: Male
  Weight: 118.04 kg

DRUGS (1)
  1. CIPROFLOXACIN 500MG TAB APOT [Suspect]
     Active Substance: CIPROFLOXACIN
     Indication: WOUND INFECTION BACTERIAL
     Route: 048
     Dates: start: 20070305, end: 20070315

REACTIONS (1)
  - Product label counterfeit [None]

NARRATIVE: CASE EVENT DATE: 20170304
